FAERS Safety Report 7590945-6 (Version None)
Quarter: 2011Q3

REPORT INFORMATION
  Report Type: 
  Country: None (occurrence: None)
  Receive Date: 20110705
  Receipt Date: 20110629
  Transmission Date: 20111222
  Serious: Yes (Hospitalization)
  Sender: FDA-Public Use
  Company Number: PHHY2011DE58370

PATIENT
  Age: 62 Year
  Sex: Female

DRUGS (3)
  1. ZOMETA [Suspect]
     Dosage: MONATLICH
     Route: 042
     Dates: start: 20010301, end: 20050901
  2. CHEMOTHERAPEUTICS NOS [Concomitant]
  3. IBANDRONATE SODIUM [Suspect]
     Dosage: UNK
     Route: 042
     Dates: start: 20050901, end: 20050923

REACTIONS (1)
  - OSTEOMYELITIS [None]
